FAERS Safety Report 15118020 (Version 1)
Quarter: 2018Q3

REPORT INFORMATION
  Report Type: Spontaneous
  Country: IT (occurrence: IT)
  Receive Date: 20180707
  Receipt Date: 20180707
  Transmission Date: 20181010
  Serious: Yes (Other)
  Sender: FDA-Public Use
  Company Number: IT-AUROBINDO-AUR-APL-2018-035016

PATIENT
  Age: 45 Year
  Sex: Male

DRUGS (5)
  1. PIPERACILLIN/TAZOBACTAM [Concomitant]
     Active Substance: PIPERACILLIN SODIUM\TAZOBACTAM SODIUM
     Indication: PRODUCT USED FOR UNKNOWN INDICATION
     Dosage: 13.5 GRAM
  2. LINEZOLID. [Suspect]
     Active Substance: LINEZOLID
     Indication: PNEUMONIA STAPHYLOCOCCAL
     Dosage: 1200 MILLIGRAM
     Route: 065
  3. CEFTOBIPROLE MEDOCARIL SODIUM [Suspect]
     Active Substance: CEFTOBIPROLE MEDOCARIL
     Indication: PNEUMONIA STAPHYLOCOCCAL
     Dosage: 1500 MILLIGRAM
     Route: 065
  4. AZITHROMYCIN ANHYDROUS. [Concomitant]
     Active Substance: AZITHROMYCIN ANHYDROUS
     Indication: PRODUCT USED FOR UNKNOWN INDICATION
  5. LINEZOLID. [Suspect]
     Active Substance: LINEZOLID
     Indication: PNEUMONIA

REACTIONS (3)
  - Alveolar lung disease [Unknown]
  - Gangrene [Unknown]
  - Pneumonia necrotising [Unknown]
